FAERS Safety Report 26130701 (Version 1)
Quarter: 2025Q4

REPORT INFORMATION
  Report Type: Spontaneous
  Country: TW (occurrence: TW)
  Receive Date: 20251208
  Receipt Date: 20251208
  Transmission Date: 20260117
  Serious: Yes (Hospitalization, Other)
  Sender: ASTELLAS
  Company Number: TW-ASTELLAS-2025-AER-066810

PATIENT
  Age: 57 Year
  Sex: Male

DRUGS (5)
  1. TACROLIMUS [Suspect]
     Active Substance: TACROLIMUS
     Indication: Renal transplant
     Route: 065
  2. TACROLIMUS [Suspect]
     Active Substance: TACROLIMUS
     Dosage: LOW DOSE
     Route: 065
  3. DUPILUMAB [Suspect]
     Active Substance: DUPILUMAB
     Indication: Dermatitis atopic
     Route: 065
  4. EVEROLIMUS [Suspect]
     Active Substance: EVEROLIMUS
     Indication: Renal transplant
     Route: 065
  5. MYFORTIC [Suspect]
     Active Substance: MYCOPHENOLATE SODIUM
     Indication: Renal transplant
     Route: 065

REACTIONS (7)
  - Skin necrosis [Recovering/Resolving]
  - Scab [Recovering/Resolving]
  - Herpes zoster disseminated [Recovering/Resolving]
  - Condition aggravated [Recovering/Resolving]
  - Necrotising fasciitis [Recovering/Resolving]
  - Cellulitis [Recovering/Resolving]
  - Klebsiella infection [Recovering/Resolving]
